FAERS Safety Report 23975296 (Version 1)
Quarter: 2024Q2

REPORT INFORMATION
  Report Type: Spontaneous
  Country: JP (occurrence: JP)
  Receive Date: 20240614
  Receipt Date: 20240614
  Transmission Date: 20240716
  Serious: Yes (Hospitalization, Other)
  Sender: FDA-Public Use
  Company Number: JP-MSD-M2024-22795

PATIENT
  Age: 83 Year
  Sex: Female

DRUGS (1)
  1. LAGEVRIO [Suspect]
     Active Substance: MOLNUPIRAVIR
     Indication: COVID-19 treatment
     Dosage: 800 MILLIGRAM, BID
     Route: 048
     Dates: start: 20240522, end: 202405

REACTIONS (7)
  - Bronchitis [Recovered/Resolved]
  - Oculomucocutaneous syndrome [Recovered/Resolved]
  - Atypical lymphocytes increased [Recovered/Resolved]
  - Chemokine increased [Recovered/Resolved]
  - Skin erosion [Recovered/Resolved]
  - Rash [Recovered/Resolved]
  - Diarrhoea [Recovered/Resolved]

NARRATIVE: CASE EVENT DATE: 20240101
